FAERS Safety Report 6242294-6 (Version None)
Quarter: 2009Q2

REPORT INFORMATION
  Report Type: 
  Country: None (occurrence: None)
  Receive Date: 20090624
  Receipt Date: 20090617
  Transmission Date: 20091009
  Serious: Yes (Hospitalization)
  Sender: FDA-Public Use
  Company Number: US-BIOGENIDEC-2009BI015956

PATIENT
  Age: 51 Year
  Sex: Female
  Weight: 89 kg

DRUGS (3)
  1. AVONEX [Suspect]
     Indication: MULTIPLE SCLEROSIS
     Route: 030
     Dates: start: 19991001, end: 20030101
  2. AVONEX [Suspect]
     Route: 030
     Dates: start: 20030101, end: 20080101
  3. AVONEX [Suspect]
     Route: 030
     Dates: start: 20090101, end: 20090101

REACTIONS (2)
  - FALL [None]
  - SPLENIC RUPTURE [None]
